FAERS Safety Report 8524846-3 (Version None)
Quarter: 2012Q3

REPORT INFORMATION
  Report Type: 
  Country: None (occurrence: None)
  Receive Date: 20120720
  Receipt Date: 20120712
  Transmission Date: 20120928
  Serious: Yes (Other)
  Sender: FDA-Public Use
  Company Number: US-ABBOTT-12P-163-0948924-00

PATIENT
  Sex: Female

DRUGS (37)
  1. ATIVAN [Concomitant]
     Indication: PRODUCT USED FOR UNKNOWN INDICATION
  2. FLAGYL [Concomitant]
     Indication: PRODUCT USED FOR UNKNOWN INDICATION
     Route: 048
  3. TRILEPTAL [Concomitant]
     Dosage: 0.5 TAB IN THE MORNING AND 2 TABS AT NIGHT
  4. CIPROFLOXACIN HCL [Concomitant]
     Indication: PRODUCT USED FOR UNKNOWN INDICATION
     Route: 048
  5. HUMIRA [Suspect]
     Route: 058
  6. ESTROGEN [Concomitant]
     Indication: SUPPLEMENTATION THERAPY
     Dosage: 1 TAB/CAP DAILY
     Route: 048
  7. HYDROMORPHONE HCL [Concomitant]
     Indication: PAIN
     Dosage: GENERIC FOR DILAUDID. 1-2 TABLETS EVERY 4-6 HOURS AS NEEDED
     Route: 048
  8. HUMIRA [Suspect]
     Indication: CROHN'S DISEASE
     Route: 058
     Dates: start: 20080418, end: 20080418
  9. PREDNISONE [Concomitant]
     Indication: PRODUCT USED FOR UNKNOWN INDICATION
     Route: 048
  10. TPN [Concomitant]
     Indication: PRODUCT USED FOR UNKNOWN INDICATION
     Dosage: EVERY DAY
  11. HUMIRA [Suspect]
  12. ZOFRAN [Concomitant]
     Indication: NAUSEA
     Dosage: AS NEEDED
     Route: 048
  13. HYDROMORPHONE HCL [Concomitant]
     Dosage: 1-2 EVERY 4-6 HOURS
  14. KETOROLAC TROMETHAMINE [Concomitant]
     Indication: PRODUCT USED FOR UNKNOWN INDICATION
  15. OXYCODONE HCL [Concomitant]
     Indication: PAIN
     Dosage: TAKE 1-2 TABLETS EVERY 4-6 HOURS AS NEEDED.
     Route: 048
  16. HUMIRA [Suspect]
     Route: 058
  17. FOLBIC [Concomitant]
     Indication: PRODUCT USED FOR UNKNOWN INDICATION
     Dosage: 2.5-25-2MG TABS
     Route: 048
  18. CYANOCOBALAMIN [Concomitant]
     Indication: PRODUCT USED FOR UNKNOWN INDICATION
     Dosage: 1000MCG/ML SOLN, 1CC PER MONTH
     Route: 058
  19. TRILEPTAL [Concomitant]
     Indication: PRODUCT USED FOR UNKNOWN INDICATION
     Dosage: 1 TAB IN MORNING AND 2 TABS IN EVENING
     Route: 048
  20. AUGMENTIN '500' [Concomitant]
     Indication: PRODUCT USED FOR UNKNOWN INDICATION
     Dosage: 875-125MG
     Route: 048
  21. TRIAMCINOLONE ACETONIDE [Concomitant]
     Indication: PRODUCT USED FOR UNKNOWN INDICATION
     Dosage: APPLIED TO AREA OF CONCERN
  22. ZOFRAN [Concomitant]
     Indication: VOMITING
  23. PREDNISONE [Concomitant]
     Route: 048
  24. METHADONE HCL [Concomitant]
     Indication: PRODUCT USED FOR UNKNOWN INDICATION
     Route: 048
  25. CLONIDINE HCL [Concomitant]
     Indication: PRODUCT USED FOR UNKNOWN INDICATION
  26. LITHIUM CITRATE [Concomitant]
     Indication: PRODUCT USED FOR UNKNOWN INDICATION
     Dosage: 6MEQ/5ML, 1/2 TSP INSTEAD OF THE LITHIUM TABLETS
     Route: 048
  27. LITHIUM CARBONATE [Concomitant]
     Indication: PRODUCT USED FOR UNKNOWN INDICATION
     Dosage: 2 PILLS IN MORNING AND 1 PILL IN EVENING
  28. FUROSEMIDE [Concomitant]
     Indication: PRODUCT USED FOR UNKNOWN INDICATION
     Route: 048
  29. CARAFATE [Concomitant]
     Indication: PRODUCT USED FOR UNKNOWN INDICATION
     Dosage: 1 HOUR BEFORE LUNCH AND DINNER
     Route: 048
  30. ACIPHEX [Concomitant]
     Indication: PRODUCT USED FOR UNKNOWN INDICATION
     Dosage: TBEC
     Route: 048
  31. NORCO [Concomitant]
     Indication: PAIN
     Dosage: 10-325MG.TAKE 1-2 TABLETS EVERY 4-6 HOURS AS NEEDED. DO NOT EXCEED 8 TABLETS IN 24 HOURS.
     Route: 048
  32. LEVAQUIN [Concomitant]
     Indication: PRODUCT USED FOR UNKNOWN INDICATION
     Route: 048
  33. OMEPRAZOLE MAGNESIUM [Concomitant]
     Indication: PRODUCT USED FOR UNKNOWN INDICATION
     Dosage: OTC
     Route: 048
  34. PREDNISONE [Concomitant]
     Route: 048
  35. FLUCONAZOLE [Concomitant]
     Indication: PRODUCT USED FOR UNKNOWN INDICATION
     Dosage: DAILY FOR 14 DAYS
     Route: 048
  36. LAMICTAL [Concomitant]
     Indication: PRODUCT USED FOR UNKNOWN INDICATION
     Route: 048
  37. TORADOL [Concomitant]
     Indication: PRODUCT USED FOR UNKNOWN INDICATION

REACTIONS (36)
  - FISTULA [None]
  - WEIGHT INCREASED [None]
  - WEIGHT DECREASED [None]
  - GASTROINTESTINAL ULCER [None]
  - TENDERNESS [None]
  - HYPERHIDROSIS [None]
  - PALPITATIONS [None]
  - CUSHINGOID [None]
  - URTICARIA [None]
  - INTESTINAL FISTULA [None]
  - ARTHRALGIA [None]
  - ABDOMINAL ADHESIONS [None]
  - NAUSEA [None]
  - ABDOMINAL PAIN UPPER [None]
  - RASH ERYTHEMATOUS [None]
  - ABDOMINAL MASS [None]
  - LOCALISED INTRAABDOMINAL FLUID COLLECTION [None]
  - ABDOMINAL PAIN [None]
  - PYREXIA [None]
  - IMPAIRED HEALING [None]
  - PURULENT DISCHARGE [None]
  - DYSPHAGIA [None]
  - HYPOGLYCAEMIA [None]
  - ABDOMINAL PAIN LOWER [None]
  - DIARRHOEA [None]
  - MALAISE [None]
  - DRUG INEFFECTIVE [None]
  - FATIGUE [None]
  - CLOSTRIDIUM DIFFICILE COLITIS [None]
  - OEDEMA [None]
  - CROHN'S DISEASE [None]
  - ADVERSE DRUG REACTION [None]
  - PARAESTHESIA [None]
  - DYSPNOEA [None]
  - FLUID OVERLOAD [None]
  - FISTULA DISCHARGE [None]
